FAERS Safety Report 8066916-2 (Version None)
Quarter: 2012Q1

REPORT INFORMATION
  Report Type: 
  Country: None (occurrence: None)
  Receive Date: 20120124
  Receipt Date: 20120119
  Transmission Date: 20120608
  Serious: Yes (Other)
  Sender: FDA-Public Use
  Company Number: GXKR2012DE000639

PATIENT
  Age: 52 Year
  Sex: Female

DRUGS (4)
  1. DOXEPIN [Suspect]
     Indication: DEPRESSION
     Dosage: 25 MG, QD
     Route: 048
     Dates: start: 20111021, end: 20111101
  2. DOXEPIN [Suspect]
     Dosage: 50 MG, QD
     Route: 048
     Dates: start: 20111102
  3. MAGNESIUM SULFATE [Concomitant]
  4. CALCIUM [Concomitant]

REACTIONS (3)
  - BLOOD ALKALINE PHOSPHATASE INCREASED [None]
  - TRANSAMINASES INCREASED [None]
  - GAMMA-GLUTAMYLTRANSFERASE INCREASED [None]
